FAERS Safety Report 18943668 (Version 1)
Quarter: 2021Q1

REPORT INFORMATION
  Report Type: Spontaneous
  Country: US (occurrence: US)
  Receive Date: 20210225
  Receipt Date: 20210225
  Transmission Date: 20210420
  Serious: No
  Sender: FDA-Public Use
  Company Number: None

PATIENT
  Age: 47 Year
  Sex: Female
  Weight: 50.35 kg

DRUGS (1)
  1. ESTRADIOL PATCH 0.075MG [Suspect]
     Active Substance: ESTRADIOL
     Dosage: MG/24 HR
     Route: 062
     Dates: start: 202003, end: 202004

REACTIONS (5)
  - Malaise [None]
  - Rash [None]
  - Product substitution issue [None]
  - Feeling abnormal [None]
  - Irritability [None]
